FAERS Safety Report 17880047 (Version 2)
Quarter: 2020Q4

REPORT INFORMATION
  Report Type: Spontaneous
  Country: JP (occurrence: JP)
  Receive Date: 20200610
  Receipt Date: 20201028
  Transmission Date: 20210113
  Serious: Yes (Other)
  Sender: FDA-Public Use
  Company Number: JP-MYLANLABS-2020M1053688

PATIENT
  Age: 43 Year
  Sex: Female
  Weight: 61 kg

DRUGS (116)
  1. PREDNISOLONE. [Suspect]
     Active Substance: PREDNISOLONE
     Dosage: 15 MILLIGRAM, QD
     Route: 048
     Dates: start: 20140116, end: 20140219
  2. CELLCEPT [Suspect]
     Active Substance: MYCOPHENOLATE MOFETIL\MYCOPHENOLATE MOFETIL HYDROCHLORIDE
     Dosage: 1500 MILLIGRAM, QD
     Route: 048
     Dates: start: 20170608, end: 20171004
  3. PROGRAF [Suspect]
     Active Substance: TACROLIMUS
     Dosage: 3 MILLIGRAM, QD
     Route: 048
     Dates: start: 20170216
  4. LUTORAL [Concomitant]
     Active Substance: CHLORMADINONE ACETATE
     Dosage: 4 MILLIGRAM, QD
     Route: 048
     Dates: start: 20090630, end: 20090704
  5. PARIET [Concomitant]
     Active Substance: RABEPRAZOLE SODIUM
     Indication: PROPHYLAXIS
     Dosage: 10-20 MILLIGRAM, QD
     Route: 048
     Dates: start: 20090528
  6. PARIET [Concomitant]
     Active Substance: RABEPRAZOLE SODIUM
     Indication: DYSPEPSIA
     Dosage: 20 MILLIGRAM, QD
     Route: 048
     Dates: start: 20130516, end: 20150318
  7. FERROMIA [Concomitant]
     Active Substance: SODIUM FERROUS CITRATE
     Indication: IRON DEFICIENCY ANAEMIA
     Dosage: 50 MILLIGRAM, QD
     Route: 048
     Dates: start: 20110113, end: 20110203
  8. RESTAMIN                           /00000401/ [Concomitant]
     Active Substance: DIPHENHYDRAMINE
     Indication: PRURITUS
     Dosage: UNK
     Route: 061
     Dates: start: 20110811, end: 20111005
  9. PL [Concomitant]
     Active Substance: ACETAMINOPHEN\CAFFEINE\PROMETHAZINE\SALICYLAMIDE
     Indication: NASOPHARYNGITIS
     Dosage: 3 GRAM, QD
     Route: 048
     Dates: start: 20110901, end: 20110908
  10. PROPETO [Concomitant]
     Active Substance: PETROLATUM
     Indication: DRY SKIN
     Dosage: UNK
     Route: 061
     Dates: start: 20120906, end: 20121018
  11. RINDERON VG [Concomitant]
     Active Substance: BETAMETHASONE VALERATE\GENTAMICIN SULFATE
     Indication: RASH
     Dosage: UNK
     Route: 061
     Dates: start: 20140220, end: 20140319
  12. LANSOPRAZOLE. [Concomitant]
     Active Substance: LANSOPRAZOLE
     Indication: PROPHYLAXIS
     Dosage: 15 MILLIGRAM, QD
     Route: 048
     Dates: start: 20170810
  13. PREDNISOLONE. [Suspect]
     Active Substance: PREDNISOLONE
     Dosage: 5-17.5 MILLIGRAM, QOD
     Route: 048
     Dates: start: 20090115, end: 20090521
  14. PLAQUENIL S [Suspect]
     Active Substance: HYDROXYCHLOROQUINE SULFATE
     Indication: LUPUS NEPHRITIS
     Dosage: 200 MILLIGRAM, QD
     Route: 048
     Dates: start: 20170216, end: 20170412
  15. PROGRAF [Suspect]
     Active Substance: TACROLIMUS
     Dosage: 4 MILLIGRAM, QD
     Route: 048
     Dates: start: 20140925, end: 20141119
  16. BAKTAR [Concomitant]
     Active Substance: SULFAMETHOXAZOLE\TRIMETHOPRIM
     Indication: PROPHYLAXIS
     Dosage: 2 DF, TWICE PER WEEK
     Route: 048
  17. SELBEX [Concomitant]
     Active Substance: TEPRENONE
     Indication: OROPHARYNGEAL PAIN
     Dosage: UNK
     Route: 065
  18. RESTAMIN                           /00000401/ [Concomitant]
     Active Substance: DIPHENHYDRAMINE
     Indication: ECZEMA
     Dosage: UNK
     Route: 061
     Dates: start: 20160623, end: 20160803
  19. JUVELA N [Concomitant]
     Active Substance: TOCOPHERYL NICOTINATE, D-.ALPHA.
     Indication: LUPUS NEPHRITIS
     Dosage: 600 MILLIGRAM, QD
     Route: 048
     Dates: start: 20130321, end: 20130417
  20. BREDININ [Concomitant]
     Active Substance: MIZORIBINE
     Indication: LUPUS NEPHRITIS
     Dosage: 50 MILLIGRAM, QD
     Route: 048
     Dates: start: 20130418, end: 20130612
  21. PREDNISOLONE. [Suspect]
     Active Substance: PREDNISOLONE
     Dosage: 5-20 MILLIGRAM, QOD
     Route: 048
     Dates: start: 20081204, end: 20090115
  22. PREDNISOLONE. [Suspect]
     Active Substance: PREDNISOLONE
     Dosage: 5-15 MILLIGRAM, QOD
     Route: 048
     Dates: start: 20091105, end: 20100128
  23. PREDNISOLONE. [Suspect]
     Active Substance: PREDNISOLONE
     Dosage: 5-15 MILLIGRAM, QOD
     Route: 048
     Dates: start: 20100617, end: 20101020
  24. PREDNISOLONE. [Suspect]
     Active Substance: PREDNISOLONE
     Dosage: 17.5 MILLIGRAM, QD
     Route: 048
     Dates: start: 20141120, end: 20150121
  25. PREDNISOLONE. [Suspect]
     Active Substance: PREDNISOLONE
     Dosage: 15 MILLIGRAM, QD
     Route: 048
     Dates: start: 20150122, end: 20150218
  26. PREDNISOLONE. [Suspect]
     Active Substance: PREDNISOLONE
     Dosage: 10 MILLIGRAM, QD
     Route: 048
     Dates: start: 20151217, end: 20160622
  27. CELLCEPT [Suspect]
     Active Substance: MYCOPHENOLATE MOFETIL\MYCOPHENOLATE MOFETIL HYDROCHLORIDE
     Dosage: 2000 MILLIGRAM, QD
     Route: 048
     Dates: start: 20171005
  28. JUVELA                             /00110502/ [Concomitant]
     Active Substance: .ALPHA.-TOCOPHEROL ACETATE
     Indication: RASH
     Dosage: 150 MILLIGRAM, QD
     Route: 048
  29. MYSER                              /00115501/ [Concomitant]
     Active Substance: CYCLOSERINE
     Indication: RASH
     Dosage: UNK
     Route: 061
     Dates: start: 20100909, end: 20101021
  30. MYSER                              /00115501/ [Concomitant]
     Active Substance: CYCLOSERINE
     Dosage: UNK
     Route: 061
     Dates: start: 20140320, end: 20160220
  31. INCREMIN                           /00023544/ [Concomitant]
     Active Substance: FERRIC PYROPHOSPHATE
     Indication: IRON DEFICIENCY ANAEMIA
     Dosage: 2 MILLILITER, QD
     Route: 048
     Dates: start: 20110331, end: 20121219
  32. COCARL [Concomitant]
     Active Substance: ACETAMINOPHEN
     Indication: BACK PAIN
     Dosage: 400 MILLIGRAM, QD
     Route: 048
     Dates: start: 20120105, end: 20120115
  33. EPADEL-S [Concomitant]
     Active Substance: ICOSAPENT ETHYL
     Indication: LUPUS NEPHRITIS
     Dosage: 1800 MILLIGRAM
     Route: 048
     Dates: start: 20121122, end: 20130320
  34. EPADEL-S [Concomitant]
     Active Substance: ICOSAPENT ETHYL
     Dosage: 1800 MILLIGRAM
     Route: 048
     Dates: start: 20130418
  35. PREDNISOLONE. [Suspect]
     Active Substance: PREDNISOLONE
     Dosage: 25 MILLIGRAM, QOD
     Route: 048
     Dates: start: 20080807, end: 20081204
  36. PREDNISOLONE. [Suspect]
     Active Substance: PREDNISOLONE
     Dosage: 5-17.5 MILLIGRAM, QOD
     Route: 048
     Dates: start: 20130124, end: 20130417
  37. PREDNISOLONE. [Suspect]
     Active Substance: PREDNISOLONE
     Dosage: 17.5 MILLIGRAM, QD
     Route: 048
     Dates: start: 20130418, end: 20130612
  38. PREDNISOLONE. [Suspect]
     Active Substance: PREDNISOLONE
     Dosage: 12.5 MILLIGRAM, QD
     Route: 048
     Dates: start: 20140220, end: 20140702
  39. PROGRAF [Suspect]
     Active Substance: TACROLIMUS
     Indication: LUPUS NEPHRITIS
     Dosage: 3 MILLIGRAM, QD
     Route: 048
     Dates: start: 20080313, end: 20140924
  40. PROGRAF [Suspect]
     Active Substance: TACROLIMUS
     Dosage: 5 MILLIGRAM, QD
     Route: 048
     Dates: start: 20141120, end: 20170215
  41. GASTER [Concomitant]
     Active Substance: FAMOTIDINE
     Indication: PRODUCT USED FOR UNKNOWN INDICATION
     Dosage: 20 MILLIGRAM
     Route: 048
  42. BAKTAR [Concomitant]
     Active Substance: SULFAMETHOXAZOLE\TRIMETHOPRIM
     Dosage: 2 DF, THRICE PER WEEK
     Route: 048
     Dates: start: 20130321
  43. PERSANTINE [Concomitant]
     Active Substance: DIPYRIDAMOLE
     Indication: LUPUS NEPHRITIS
     Dosage: 300 MILLIGRAM, QD
     Route: 048
  44. LUTORAL [Concomitant]
     Active Substance: CHLORMADINONE ACETATE
     Dosage: 4 MILLIGRAM, QD
     Route: 048
     Dates: start: 20100413, end: 20121031
  45. MEVALOTIN [Concomitant]
     Active Substance: PRAVASTATIN SODIUM
     Indication: HYPERLIPIDAEMIA
     Dosage: 5 MILLIGRAM, QD
     Route: 048
     Dates: start: 20100729, end: 20100909
  46. INCREMIN                           /00023544/ [Concomitant]
     Active Substance: FERRIC PYROPHOSPHATE
     Indication: PROPHYLAXIS
     Dosage: UNK UNK, QD
     Route: 048
  47. BREDININ [Concomitant]
     Active Substance: MIZORIBINE
     Dosage: 125 MILLIGRAM, QD
     Route: 048
     Dates: start: 20130919, end: 20131016
  48. CARBOCYSTEINE [Concomitant]
     Active Substance: CARBOCYSTEINE
     Indication: BRONCHITIS
     Dosage: 750 MILLIGRAM, QD
     Route: 048
     Dates: start: 20170817, end: 20170823
  49. PREDNISOLONE. [Suspect]
     Active Substance: PREDNISOLONE
     Dosage: 5-12.5 MILLIGRAM, QOD
     Route: 048
     Dates: start: 20101021, end: 20110831
  50. PREDNISOLONE. [Suspect]
     Active Substance: PREDNISOLONE
     Dosage: 5-15 MILLIGRAM, QOD
     Route: 048
     Dates: start: 20121122, end: 20130123
  51. CELLCEPT [Suspect]
     Active Substance: MYCOPHENOLATE MOFETIL\MYCOPHENOLATE MOFETIL HYDROCHLORIDE
     Dosage: 1500 MILLIGRAM, QD
     Route: 048
     Dates: start: 20150319, end: 20150722
  52. LIPITOR [Suspect]
     Active Substance: ATORVASTATIN CALCIUM
     Indication: HYPERLIPIDAEMIA
     Dosage: 2.5 MILLIGRAM, QD
     Route: 048
     Dates: start: 20130124, end: 20130418
  53. LUTORAL [Concomitant]
     Active Substance: CHLORMADINONE ACETATE
     Indication: OVARIAN FAILURE
     Dosage: 4 MILLIGRAM, QD
     Route: 048
     Dates: start: 20080703, end: 20080712
  54. PARIET [Concomitant]
     Active Substance: RABEPRAZOLE SODIUM
     Indication: BACK PAIN
     Dosage: 10 MILLIGRAM, QD
     Route: 048
     Dates: end: 20130515
  55. PARIET [Concomitant]
     Active Substance: RABEPRAZOLE SODIUM
     Dosage: 10 MILLIGRAM, QD
     Route: 048
     Dates: start: 20150319, end: 20170104
  56. GLAKAY [Concomitant]
     Active Substance: MENATETRENONE
     Indication: PROPHYLAXIS
     Dosage: 45 MILLIGRAM, QD
     Route: 048
     Dates: start: 20100422
  57. COCARL [Concomitant]
     Active Substance: ACETAMINOPHEN
     Indication: TOOTH EXTRACTION
     Dosage: 400 MILLIGRAM, QD
     Route: 048
     Dates: start: 20111013, end: 20111018
  58. BUSCOPAN [Concomitant]
     Active Substance: BUTYLSCOPOLAMINE BROMIDE
     Indication: ABDOMINAL PAIN
     Dosage: 10 MILLIGRAM, QD
     Route: 048
     Dates: start: 20120802, end: 20120808
  59. IMURAN [Concomitant]
     Active Substance: AZATHIOPRINE
     Indication: LUPUS NEPHRITIS
     Dosage: 25 MILLIGRAM, QD
     Route: 048
     Dates: start: 20130321, end: 20130417
  60. KINDAVATE [Concomitant]
     Active Substance: CLOBETASONE BUTYRATE
     Indication: RASH
     Dosage: UNK
     Route: 061
     Dates: start: 20131212, end: 20140115
  61. CELECOX [Concomitant]
     Active Substance: CELECOXIB
     Indication: ARTHRITIS
     Dosage: 100 MILLIGRAM, QD
     Route: 048
     Dates: start: 20140703, end: 20140730
  62. PREDNISOLONE. [Suspect]
     Active Substance: PREDNISOLONE
     Dosage: 5-17.5 MILLIGRAM, QOD
     Route: 048
     Dates: start: 20100422, end: 20100616
  63. PREDNISOLONE. [Suspect]
     Active Substance: PREDNISOLONE
     Dosage: 5-20 MILLIGRAM, QOD
     Route: 048
     Dates: start: 20110901, end: 20120104
  64. PREDNISOLONE. [Suspect]
     Active Substance: PREDNISOLONE
     Dosage: 5-15 MILLIGRAM, QOD
     Route: 048
     Dates: start: 20120105, end: 20120801
  65. PREDNISOLONE. [Suspect]
     Active Substance: PREDNISOLONE
     Dosage: 5-25 MILLIGRAM, QOD
     Route: 048
     Dates: start: 20120802, end: 20121121
  66. PREDNISOLONE. [Suspect]
     Active Substance: PREDNISOLONE
     Dosage: 15 MILLIGRAM, QD
     Route: 048
     Dates: start: 20140828, end: 20140924
  67. PREDNISOLONE. [Suspect]
     Active Substance: PREDNISOLONE
     Dosage: 20 MILLIGRAM, QD
     Route: 048
     Dates: start: 20140925, end: 20141119
  68. PREDNISOLONE. [Suspect]
     Active Substance: PREDNISOLONE
     Dosage: 12.5 MILLIGRAM, QD
     Route: 048
     Dates: start: 20150219, end: 20151216
  69. FLOMOX                             /01418603/ [Suspect]
     Active Substance: CEFCAPENE PIVOXIL HYDROCHLORIDE
     Indication: TOOTH EXTRACTION
     Dosage: 300 MILLIGRAM, QD
     Route: 048
     Dates: start: 20111013, end: 20111018
  70. FLOMOX                             /01418603/ [Suspect]
     Active Substance: CEFCAPENE PIVOXIL HYDROCHLORIDE
     Indication: OROPHARYNGEAL PAIN
     Dosage: UNK UNK, QD
     Route: 048
  71. ZITHROMAC [Suspect]
     Active Substance: AZITHROMYCIN DIHYDRATE
     Indication: TOOTH EXTRACTION
     Dosage: 2 GRAM, QD
     Route: 048
     Dates: start: 20111013, end: 20111014
  72. CELLCEPT [Suspect]
     Active Substance: MYCOPHENOLATE MOFETIL\MYCOPHENOLATE MOFETIL HYDROCHLORIDE
     Indication: LUPUS NEPHRITIS
     Dosage: 500 MILLIGRAM, QD
     Route: 048
     Dates: start: 20140220, end: 20140416
  73. LUTORAL [Concomitant]
     Active Substance: CHLORMADINONE ACETATE
     Dosage: 4 MILLIGRAM, QD
     Route: 048
     Dates: start: 20090115, end: 20090124
  74. SELBEX [Concomitant]
     Active Substance: TEPRENONE
     Indication: NASOPHARYNGITIS
     Dosage: 100 MILLIGRAM, QD
     Route: 065
     Dates: start: 20091228, end: 20100103
  75. LAC-B [Concomitant]
     Active Substance: BIFIDOBACTERIUM SPP.
     Indication: ENTEROCOLITIS VIRAL
     Dosage: 6 GRAM, QD
     Route: 048
     Dates: start: 20120227, end: 20120305
  76. HIRUDOID [Concomitant]
     Active Substance: GLYCOSAMINOGLYCANS
     Indication: RASH
     Dosage: UNK
     Route: 061
     Dates: start: 20140116, end: 20140219
  77. PREDNISOLONE. [Suspect]
     Active Substance: PREDNISOLONE
     Indication: LUPUS NEPHRITIS
     Dosage: 15 MILLIGRAM, QOD
     Route: 048
     Dates: end: 20080807
  78. PREDNISOLONE. [Suspect]
     Active Substance: PREDNISOLONE
     Dosage: 5-12.5 MILLIGRAM, QOD
     Route: 048
     Dates: start: 20090924, end: 20091105
  79. PREDNISOLONE. [Suspect]
     Active Substance: PREDNISOLONE
     Dosage: 5-20 MILLIGRAM, QOD
     Route: 048
     Dates: start: 20100128, end: 20100421
  80. PREDNISOLONE. [Suspect]
     Active Substance: PREDNISOLONE
     Dosage: 12.5 MILLIGRAM, QD
     Route: 048
     Dates: start: 20130711, end: 20130918
  81. PREDNISOLONE. [Suspect]
     Active Substance: PREDNISOLONE
     Dosage: 10 MILLIGRAM, QD
     Route: 048
     Dates: start: 20130919, end: 20140115
  82. CELLCEPT [Suspect]
     Active Substance: MYCOPHENOLATE MOFETIL\MYCOPHENOLATE MOFETIL HYDROCHLORIDE
     Dosage: 1000 MILLIGRAM, QD
     Route: 048
     Dates: start: 20150723, end: 20160330
  83. ALFAROL [Concomitant]
     Active Substance: ALFACALCIDOL
     Indication: PROPHYLAXIS
     Dosage: 0.25 MICROGRAM, QD
     Route: 048
  84. ISODINE [Concomitant]
     Active Substance: POVIDONE-IODINE
     Indication: PRODUCT USED FOR UNKNOWN INDICATION
  85. JUVELA                             /00110502/ [Concomitant]
     Active Substance: .ALPHA.-TOCOPHEROL ACETATE
     Dosage: 400 MILLIGRAM, QD
     Route: 048
     Dates: start: 20140320, end: 20150520
  86. LUTORAL [Concomitant]
     Active Substance: CHLORMADINONE ACETATE
     Dosage: 4 MILLIGRAM, QD
     Route: 048
     Dates: start: 20090714, end: 20090728
  87. FOSAMAC [Concomitant]
     Active Substance: ALENDRONATE SODIUM
     Indication: PRODUCT USED FOR UNKNOWN INDICATION
     Dosage: 5 MILLIGRAM, QD
     Route: 048
     Dates: start: 20091217, end: 20100128
  88. LOXONIN [Concomitant]
     Active Substance: LOXOPROFEN SODIUM
     Indication: NASOPHARYNGITIS
     Dosage: 120 MILLIGRAM, QD
     Route: 065
     Dates: start: 20091228, end: 20100103
  89. LOXONIN [Concomitant]
     Active Substance: LOXOPROFEN SODIUM
     Indication: OROPHARYNGEAL PAIN
     Dosage: UNK UNK, QD
     Route: 065
  90. PREMARIN [Concomitant]
     Active Substance: ESTROGENS, CONJUGATED
     Indication: OVARIAN FAILURE
     Dosage: 1.25 MILLIGRAM, QD
     Route: 048
     Dates: start: 20100413, end: 20121031
  91. LAC-B [Concomitant]
     Active Substance: BIFIDOBACTERIUM SPP.
     Dosage: 3 GRAM, QD
     Route: 048
     Dates: start: 20121109, end: 20121112
  92. LOPEMIN                            /00384302/ [Concomitant]
     Active Substance: LOPERAMIDE HYDROCHLORIDE
     Indication: ENTEROCOLITIS VIRAL
     Dosage: 2 MILLIGRAM, QD
     Route: 048
     Dates: start: 20120227, end: 20120301
  93. BREDININ [Concomitant]
     Active Substance: MIZORIBINE
     Dosage: 100 MILLIGRAM, QD
     Route: 048
     Dates: start: 20130711, end: 20130918
  94. BREDININ [Concomitant]
     Active Substance: MIZORIBINE
     Dosage: 150 MILLIGRAM, QD
     Route: 048
     Dates: start: 20131017, end: 20140219
  95. ZETIA [Concomitant]
     Active Substance: EZETIMIBE
     Indication: HYPERLIPIDAEMIA
     Dosage: 10 MILLIGRAM, QD
     Route: 048
     Dates: start: 20130711
  96. BESOFTEN [Concomitant]
     Active Substance: PENTOSAN POLYSULFATE SODIUM
     Indication: RASH
     Dosage: 2 TUBES
     Route: 061
     Dates: start: 20171221, end: 20180214
  97. TULOBUTEROL [Concomitant]
     Active Substance: TULOBUTEROL
     Indication: BRONCHITIS
     Dosage: 2 MILLIGRAM, QD
     Dates: start: 20170817, end: 20170823
  98. PREDNISOLONE. [Suspect]
     Active Substance: PREDNISOLONE
     Dosage: 5-15 MILLIGRAM, QOD
     Route: 048
     Dates: start: 20090521, end: 20090924
  99. PREDNISOLONE. [Suspect]
     Active Substance: PREDNISOLONE
     Dosage: 15 MILLIGRAM, QD
     Route: 048
     Dates: start: 20130613, end: 20130710
  100. PREDNISOLONE. [Suspect]
     Active Substance: PREDNISOLONE
     Dosage: 20 MILLIGRAM, QD
     Route: 048
     Dates: start: 20140703, end: 20140827
  101. PREDNISOLONE. [Suspect]
     Active Substance: PREDNISOLONE
     Dosage: 7.5 MILLIGRAM, QD
     Route: 048
     Dates: start: 20160623
  102. FLOMOX                             /01418603/ [Suspect]
     Active Substance: CEFCAPENE PIVOXIL HYDROCHLORIDE
     Indication: NASOPHARYNGITIS
     Dosage: 300 MILLIGRAM, QD
     Route: 048
     Dates: start: 20091228, end: 20100101
  103. CELLCEPT [Suspect]
     Active Substance: MYCOPHENOLATE MOFETIL\MYCOPHENOLATE MOFETIL HYDROCHLORIDE
     Dosage: 1000 MILLIGRAM, QD
     Route: 048
     Dates: start: 20140417, end: 20150318
  104. CELLCEPT [Suspect]
     Active Substance: MYCOPHENOLATE MOFETIL\MYCOPHENOLATE MOFETIL HYDROCHLORIDE
     Dosage: 1250 MILLIGRAM, QD
     Route: 048
     Dates: start: 20160331, end: 20170607
  105. PARIET [Concomitant]
     Active Substance: RABEPRAZOLE SODIUM
     Dosage: 20 MILLIGRAM, QD
     Route: 048
     Dates: start: 20170105, end: 20170215
  106. PARIET [Concomitant]
     Active Substance: RABEPRAZOLE SODIUM
     Dosage: 10 MILLIGRAM, QD
     Route: 048
     Dates: start: 20170216
  107. BIOFERMIN R [Concomitant]
     Active Substance: DIETARY SUPPLEMENT\PROBIOTICS
     Indication: DIARRHOEA
     Dosage: 3 GRAM, QD
     Route: 048
     Dates: start: 20111024, end: 20111027
  108. ONON [Concomitant]
     Active Substance: PRANLUKAST
     Indication: ALLERGIC COUGH
     Dosage: 225 MILLIGRAM, QD
     Route: 048
     Dates: start: 20120621, end: 20120801
  109. EDIROL [Concomitant]
     Active Substance: ELDECALCITOL
     Indication: PROPHYLAXIS
     Dosage: 0.75 MICROGRAM, QD
     Route: 048
     Dates: start: 20130124
  110. JUVELA N [Concomitant]
     Active Substance: TOCOPHERYL NICOTINATE, D-.ALPHA.
     Indication: RASH
     Dosage: 400 MILLIGRAM, QD
     Route: 048
     Dates: start: 20140320
  111. BREDININ [Concomitant]
     Active Substance: MIZORIBINE
     Dosage: 75 MILLIGRAM, QD
     Route: 048
     Dates: start: 20130613, end: 20130710
  112. INDOMETACIN [Concomitant]
     Active Substance: INDOMETHACIN
     Indication: PAIN IN EXTREMITY
     Dosage: UNK
     Route: 061
     Dates: start: 20130418, end: 20130612
  113. HANGESHASHINTO                     /08016601/ [Concomitant]
     Indication: DIARRHOEA
     Dosage: 2.5 MILLIGRAM, QD
     Route: 048
     Dates: start: 20150416, end: 20160224
  114. HANGESHASHINTO                     /08016601/ [Concomitant]
     Dosage: 2.5 MILLIGRAM, QD
     Route: 048
     Dates: start: 20180205
  115. ASTOMIN                            /00426502/ [Concomitant]
     Active Substance: DIMEMORFAN PHOSPHATE
     Indication: BRONCHITIS
     Dosage: 30 MILLIGRAM, QD
     Route: 048
     Dates: start: 20170907, end: 20170913
  116. AFTACH [Concomitant]
     Active Substance: TRIAMCINOLONE
     Indication: APHTHOUS ULCER
     Dosage: UNK
     Route: 065
     Dates: start: 20161208, end: 20170104

REACTIONS (23)
  - Oropharyngeal pain [Recovering/Resolving]
  - Aphthous ulcer [Recovering/Resolving]
  - Protein urine present [Unknown]
  - Rash [Recovering/Resolving]
  - Dyspepsia [Recovering/Resolving]
  - Iron deficiency anaemia [Recovered/Resolved]
  - Allergic cough [Recovered/Resolved]
  - Abdominal pain [Recovered/Resolved]
  - Dry skin [Recovering/Resolving]
  - Pain in extremity [Recovering/Resolving]
  - Fall [Unknown]
  - Muscle spasms [Recovering/Resolving]
  - Dental caries [Recovering/Resolving]
  - Back pain [Recovering/Resolving]
  - Bronchitis [Recovering/Resolving]
  - Tibia fracture [Recovering/Resolving]
  - Nasopharyngitis [Recovering/Resolving]
  - Hyperlipidaemia [Not Recovered/Not Resolved]
  - Eczema [Recovering/Resolving]
  - Pruritus [Recovering/Resolving]
  - Diarrhoea [Recovering/Resolving]
  - Enterocolitis viral [Recovering/Resolving]
  - Arthritis [Recovering/Resolving]

NARRATIVE: CASE EVENT DATE: 20090528
